FAERS Safety Report 13622616 (Version 3)
Quarter: 2017Q4

REPORT INFORMATION
  Report Type: Spontaneous
  Country: JP (occurrence: JP)
  Receive Date: 20170607
  Receipt Date: 20171211
  Transmission Date: 20180320
  Serious: Yes (Death)
  Sender: FDA-Public Use
  Company Number: JP-SEATTLE GENETICS-2017SGN01381

PATIENT
  Age: 75 Year
  Sex: Male
  Weight: 49.8 kg

DRUGS (13)
  1. ADCETRIS [Suspect]
     Active Substance: BRENTUXIMAB VEDOTIN
     Indication: ANAPLASTIC LARGE-CELL LYMPHOMA
     Dosage: 1.8 MG/KG, Q21D
     Route: 041
     Dates: start: 20170601, end: 20170601
  2. ESOMEPRAZOLE MAGNESIUM. [Concomitant]
     Active Substance: ESOMEPRAZOLE MAGNESIUM
     Indication: PROPHYLAXIS AGAINST GASTROINTESTINAL ULCER
     Dosage: 20 MG, QD
     Route: 048
     Dates: start: 20170303, end: 20170531
  3. NOREPINEPHRINE. [Concomitant]
     Active Substance: NOREPINEPHRINE
     Indication: HYPOTENSION
     Dosage: UNK
     Route: 042
     Dates: start: 20170531, end: 20170601
  4. CIPROFLOXACIN. [Concomitant]
     Active Substance: CIPROFLOXACIN
     Indication: PNEUMONIA
     Dosage: 300 MG, QD
     Route: 041
     Dates: start: 20170531, end: 20170601
  5. ADCETRIS [Suspect]
     Active Substance: BRENTUXIMAB VEDOTIN
     Dosage: 89.64 MG, Q21D
     Route: 041
     Dates: start: 20170531, end: 20170531
  6. PARACETAMOL [Concomitant]
     Active Substance: ACETAMINOPHEN
     Indication: ANTIPYRESIS
     Dosage: 50 ML, QID
     Route: 041
  7. ALBUMIN HUMAN [Concomitant]
     Active Substance: ALBUMIN HUMAN
     Indication: BLOOD ALBUMIN DECREASED
     Dosage: 12.5 G, QD
     Route: 041
     Dates: start: 20170531, end: 20170531
  8. ALBUMIN HUMAN [Concomitant]
     Active Substance: ALBUMIN HUMAN
     Indication: HYPOTENSION
  9. LEVOTHYROXINE SODIUM. [Concomitant]
     Active Substance: LEVOTHYROXINE SODIUM
     Indication: HYPOTHYROIDISM
     Dosage: 50 UG, QD
     Route: 048
     Dates: end: 20170531
  10. SULFAMETHOXAZOLE, TRIMETHOPRIM [Concomitant]
     Active Substance: SULFAMETHOXAZOLE\TRIMETHOPRIM
     Indication: INFECTION PROPHYLAXIS
     Dosage: UNK UNK, QD
     Route: 048
     Dates: start: 20170303, end: 20170531
  11. AZTREONAM. [Concomitant]
     Active Substance: AZTREONAM
     Indication: PNEUMONIA
     Dosage: 1 G, BID
     Route: 041
     Dates: start: 20170524, end: 20170531
  12. THROMBOMODULIN ALFA [Concomitant]
     Active Substance: THROMBOMODULIN ALFA
     Indication: DISSEMINATED INTRAVASCULAR COAGULATION
     Dosage: 1.5 UNK, QD
     Route: 041
     Dates: start: 20170531, end: 20170531
  13. BISOPROLOL [Concomitant]
     Active Substance: BISOPROLOL
     Indication: VENTRICULAR TACHYCARDIA
     Dosage: 4 MG, QD
     Route: 062
     Dates: start: 20170310, end: 20170531

REACTIONS (4)
  - Anaplastic large-cell lymphoma [Fatal]
  - Tumour lysis syndrome [Fatal]
  - Lactic acidosis [Fatal]
  - Dyspnoea [Fatal]

NARRATIVE: CASE EVENT DATE: 20170531
